FAERS Safety Report 5834009-8 (Version None)
Quarter: 2008Q3

REPORT INFORMATION
  Report Type: 
  Country: None (occurrence: None)
  Receive Date: 20080731
  Receipt Date: 20080716
  Transmission Date: 20090109
  Serious: Yes (Hospitalization)
  Sender: FDA-Public Use
  Company Number: 14984

PATIENT
  Age: 35 Year
  Sex: Male
  Weight: 95.2554 kg

DRUGS (2)
  1. MORPHINE SULFATE [Suspect]
     Indication: PROCEDURAL PAIN
     Dosage: 30 MG BID ORALLY
     Route: 048
     Dates: start: 20080201, end: 20080501
  2. LITHIUM CARBONATE [Concomitant]

REACTIONS (5)
  - CHEST PAIN [None]
  - DISORIENTATION [None]
  - DRUG WITHDRAWAL SYNDROME [None]
  - LOCALISED INFECTION [None]
  - PHARMACEUTICAL PRODUCT COMPLAINT [None]
